FAERS Safety Report 20145839 (Version 1)
Quarter: 2021Q4

REPORT INFORMATION
  Report Type: Spontaneous
  Country: GB (occurrence: GB)
  Receive Date: 20211203
  Receipt Date: 20211203
  Transmission Date: 20220303
  Serious: Yes (Other)
  Sender: FDA-Public Use
  Company Number: None

PATIENT
  Age: 12 Year
  Sex: Female
  Weight: 41 kg

DRUGS (1)
  1. FLUTICASONE FUROATE [Suspect]
     Active Substance: FLUTICASONE FUROATE
     Indication: Hypersensitivity
     Dosage: 1 DF, QD IN EACH NOSTRIL
     Route: 045
     Dates: start: 20210420, end: 20210930

REACTIONS (11)
  - Obsessive-compulsive disorder [Recovered/Resolved with Sequelae]
  - Mood swings [Recovering/Resolving]
  - Aggression [Recovering/Resolving]
  - Suicidal ideation [Not Recovered/Not Resolved]
  - Lethargy [Recovered/Resolved]
  - Ageusia [Not Recovered/Not Resolved]
  - Anosmia [Not Recovered/Not Resolved]
  - Anxiety [Recovered/Resolved]
  - Headache [Recovered/Resolved]
  - Abnormal behaviour [Recovering/Resolving]
  - Personality change [Recovering/Resolving]

NARRATIVE: CASE EVENT DATE: 20210520
